FAERS Safety Report 22132866 (Version 1)
Quarter: 2023Q1

REPORT INFORMATION
  Report Type: Other
  Country: CN (occurrence: None)
  Receive Date: 20230323
  Receipt Date: 20230323
  Transmission Date: 20230418
  Serious: Yes (Other)
  Sender: FDA-Public Use
  Company Number: CN-ROCHE-3314477

PATIENT
  Age: 67 Year
  Sex: Female

DRUGS (6)
  1. CAPECITABINE [Suspect]
     Active Substance: CAPECITABINE
     Indication: Metastases to lung
     Dosage: DAY 1-DAY 14 (Q3W)
     Route: 048
     Dates: start: 201904, end: 202108
  2. BEVACIZUMAB [Suspect]
     Active Substance: BEVACIZUMAB
     Indication: Metastases to lung
     Dosage: DAY 1 IVGTT
     Route: 065
     Dates: start: 201806, end: 201903
  3. DOCETAXEL [Suspect]
     Active Substance: DOCETAXEL
     Indication: Metastases to lung
     Dosage: ON DAY 1 AND DAY 8
     Route: 065
     Dates: start: 201612, end: 201903
  4. OXALIPLATIN [Suspect]
     Active Substance: OXALIPLATIN
     Indication: Metastases to lung
     Dosage: ON DAY 1 AND DAY 8 IVGTT
     Route: 065
     Dates: start: 201612, end: 201903
  5. VINCRISTINE [Concomitant]
     Active Substance: VINCRISTINE
     Route: 048
  6. LETROZOLE [Concomitant]
     Active Substance: LETROZOLE
     Dates: start: 202110

REACTIONS (2)
  - Metastases to pleura [Recovering/Resolving]
  - Disease progression [Recovering/Resolving]
